FAERS Safety Report 23494642 (Version 1)
Quarter: 2024Q1

REPORT INFORMATION
  Report Type: Other
  Country: None (occurrence: HN)
  Receive Date: 20240207
  Receipt Date: 20240207
  Transmission Date: 20240410
  Serious: No
  Sender: FDA-Public Use
  Company Number: HN-SERB S.A.S.-2152797

PATIENT
  Age: 42 Year
  Sex: Male

DRUGS (5)
  1. CYANOKIT [Suspect]
     Active Substance: HYDROXOCOBALAMIN
     Indication: Septic shock
  2. NOREPINEPHRINE [Suspect]
     Active Substance: NOREPINEPHRINE
  3. VASOPRESSIN [Suspect]
     Active Substance: VASOPRESSIN
  4. EPINEPHRINE [Suspect]
     Active Substance: EPINEPHRINE
  5. PHENYLEPHRINE [Suspect]
     Active Substance: PHENYLEPHRINE HYDROCHLORIDE

REACTIONS (2)
  - Drug-device interaction [Unknown]
  - Off label use [Unknown]
